FAERS Safety Report 22526621 (Version 7)
Quarter: 2024Q2

REPORT INFORMATION
  Report Type: Spontaneous
  Country: US (occurrence: US)
  Receive Date: 20230606
  Receipt Date: 20240520
  Transmission Date: 20240716
  Serious: Yes (Hospitalization, Other)
  Sender: FDA-Public Use
  Company Number: US-PFIZER INC-202300209271

PATIENT
  Age: 5 Year
  Sex: Female
  Weight: 18.6 kg

DRUGS (5)
  1. OXBRYTA [Suspect]
     Active Substance: VOXELOTOR
     Indication: Pain
     Dosage: 2 DISSOLVABLE TABLETS TAKES EVERY DAY
  2. OXBRYTA [Suspect]
     Active Substance: VOXELOTOR
     Indication: Sickle cell disease
     Dosage: 300 MG ORAL SUSPENION 2 TABLET ONCE DAILY
     Route: 048
     Dates: start: 202207
  3. OXBRYTA [Suspect]
     Active Substance: VOXELOTOR
     Dosage: DISSOLVABLE
     Route: 048
     Dates: start: 202204
  4. HYDROXYUREA [Concomitant]
     Active Substance: HYDROXYUREA
     Dosage: 500 MG
     Dates: start: 201804
  5. AMOXICILLIN [Concomitant]
     Active Substance: AMOXICILLIN
     Dosage: 1025 MG
     Dates: start: 201804

REACTIONS (9)
  - Sickle cell anaemia with crisis [Recovered/Resolved]
  - Oropharyngeal pain [Recovered/Resolved]
  - Back pain [Recovered/Resolved]
  - Influenza [Recovered/Resolved]
  - Off label use [Unknown]
  - Dysphagia [Recovered/Resolved]
  - Pyrexia [Recovered/Resolved]
  - Constipation [Recovered/Resolved]
  - Pain in extremity [Recovered/Resolved]

NARRATIVE: CASE EVENT DATE: 20220401
